FAERS Safety Report 23259785 (Version 1)
Quarter: 2023Q4

REPORT INFORMATION
  Report Type: Spontaneous
  Country: RU (occurrence: RU)
  Receive Date: 20231204
  Receipt Date: 20231204
  Transmission Date: 20240109
  Serious: Yes (Other)
  Sender: FDA-Public Use
  Company Number: RU-009507513-2311RUS010762

PATIENT
  Age: 47 Year
  Sex: Female

DRUGS (4)
  1. PEMBROLIZUMAB [Suspect]
     Active Substance: PEMBROLIZUMAB
     Indication: Renal cancer
     Dosage: 200 MILLIGRAM, Q3W
     Route: 042
     Dates: start: 20230911
  2. LENVATINIB MESYLATE [Suspect]
     Active Substance: LENVATINIB MESYLATE
     Indication: Renal cancer
     Dosage: 20 MILLIGRAM
     Route: 048
     Dates: start: 20230911, end: 202310
  3. LENVATINIB MESYLATE [Suspect]
     Active Substance: LENVATINIB MESYLATE
     Dosage: 10 UNK
     Route: 048
     Dates: start: 2023, end: 202311
  4. LENVATINIB MESYLATE [Suspect]
     Active Substance: LENVATINIB MESYLATE
     Dosage: 14 UNK
     Route: 048
     Dates: start: 20231127

REACTIONS (5)
  - Thrombocytopenia [Recovering/Resolving]
  - Skin toxicity [Recovering/Resolving]
  - Hypertension [Recovering/Resolving]
  - Rash papular [Recovering/Resolving]
  - Nausea [Recovering/Resolving]

NARRATIVE: CASE EVENT DATE: 20231001
